FAERS Safety Report 18092257 (Version 2)
Quarter: 2021Q2

REPORT INFORMATION
  Report Type: Spontaneous
  Country: US (occurrence: US)
  Receive Date: 20200730
  Receipt Date: 20210427
  Transmission Date: 20210717
  Serious: Yes (Other)
  Sender: FDA-Public Use
  Company Number: US-GILEAD-2020-0487004

PATIENT
  Age: 42 Year
  Sex: Male

DRUGS (1)
  1. TRUVADA [Suspect]
     Active Substance: EMTRICITABINE\TENOFOVIR DISOPROXIL FUMARATE
     Indication: PROPHYLAXIS AGAINST HIV INFECTION
     Dosage: UNK
     Route: 048
     Dates: start: 2008

REACTIONS (4)
  - Jaw fracture [Recovered/Resolved]
  - Chronic kidney disease [Unknown]
  - Bone density decreased [Not Recovered/Not Resolved]
  - Clavicle fracture [Recovered/Resolved]

NARRATIVE: CASE EVENT DATE: 2017
